FAERS Safety Report 23486039 (Version 1)
Quarter: 2024Q1

REPORT INFORMATION
  Report Type: Report from Study
  Country: US (occurrence: None)
  Receive Date: 20240206
  Receipt Date: 20240206
  Transmission Date: 20240410
  Serious: Yes (Other)
  Sender: FDA-Public Use
  Company Number: 2024A024140

PATIENT
  Sex: Female

DRUGS (1)
  1. LYNPARZA [Suspect]
     Active Substance: OLAPARIB
     Indication: Neoplasm malignant
     Route: 048
     Dates: start: 20240116

REACTIONS (22)
  - Pulmonary oedema [Unknown]
  - Abdominal pain [Unknown]
  - Haematuria [Unknown]
  - Back pain [Unknown]
  - Pallor [Unknown]
  - Neuropathy peripheral [Unknown]
  - Swelling face [Unknown]
  - Weight decreased [Unknown]
  - Influenza like illness [Unknown]
  - Pyrexia [Unknown]
  - Chills [Unknown]
  - Renal pain [Unknown]
  - Tinnitus [Not Recovered/Not Resolved]
  - Flushing [Unknown]
  - Feeding disorder [Unknown]
  - Fluid intake reduced [Unknown]
  - Vomiting [Unknown]
  - Dyspnoea [Unknown]
  - Fatigue [Unknown]
  - Headache [Unknown]
  - Cough [Unknown]
  - Asthenia [Unknown]
